FAERS Safety Report 7307007-5 (Version None)
Quarter: 2011Q1

REPORT INFORMATION
  Report Type: 
  Country: None (occurrence: None)
  Receive Date: 20110223
  Receipt Date: 20110208
  Transmission Date: 20110831
  Serious: No
  Sender: FDA-Public Use
  Company Number: US-BIOGENIDEC-2011BI005760

PATIENT
  Sex: Female

DRUGS (4)
  1. BACLOFEN [Concomitant]
  2. LEXAPRO [Concomitant]
     Indication: DEPRESSION
     Route: 048
  3. TYSABRI [Suspect]
     Indication: MULTIPLE SCLEROSIS
     Route: 042
     Dates: start: 20090102
  4. FOLIC ACID [Concomitant]

REACTIONS (5)
  - FATIGUE [None]
  - PAIN [None]
  - DIARRHOEA [None]
  - PRESYNCOPE [None]
  - FALL [None]
